FAERS Safety Report 19909669 (Version 4)
Quarter: 2021Q4

REPORT INFORMATION
  Report Type: Spontaneous
  Country: DE (occurrence: DE)
  Receive Date: 20211002
  Receipt Date: 20211201
  Transmission Date: 20220303
  Serious: Yes (Death, Hospitalization, Other)
  Sender: FDA-Public Use
  Company Number: DE-ALXN-A202110815

PATIENT
  Age: 64 Year
  Sex: Female

DRUGS (1)
  1. SOLIRIS [Suspect]
     Active Substance: ECULIZUMAB
     Indication: Neuromyelitis optica spectrum disorder
     Dosage: UNK
     Route: 065

REACTIONS (7)
  - Cerebral haemorrhage [Fatal]
  - Sepsis [Fatal]
  - Pancytopenia [Unknown]
  - Pneumonia [Unknown]
  - Renal failure [Unknown]
  - Skin haemorrhage [Unknown]
  - Urinary tract infection [Unknown]
